FAERS Safety Report 13031615 (Version 2)
Quarter: 2017Q1

REPORT INFORMATION
  Report Type: Spontaneous
  Country: GB (occurrence: GB)
  Receive Date: 20161215
  Receipt Date: 20170105
  Transmission Date: 20170428
  Serious: Yes (Hospitalization)
  Sender: FDA-Public Use
  Company Number: GB-PFIZER INC-2016577117

PATIENT
  Age: 65 Year
  Sex: Female

DRUGS (16)
  1. GABAPENTIN. [Suspect]
     Active Substance: GABAPENTIN
     Indication: NEURALGIA
     Dosage: 400 MG, 3X/DAY
     Route: 048
     Dates: start: 20161121, end: 20161128
  2. CODEINE [Suspect]
     Active Substance: CODEINE
     Indication: PAIN
     Dosage: 15MG TO 30MG FOUR TIMES A DAY
     Route: 048
     Dates: start: 20161121, end: 20161128
  3. AMOXICILLIN. [Concomitant]
     Active Substance: AMOXICILLIN
  4. PARACETAMOL [Concomitant]
     Active Substance: ACETAMINOPHEN
  5. PROCHLORPERAZINE. [Concomitant]
     Active Substance: PROCHLORPERAZINE
  6. SENNA /00142201/ [Concomitant]
     Active Substance: SENNA LEAF
  7. VAGIFEM [Concomitant]
     Active Substance: ESTRADIOL
  8. DIAZEPAM. [Concomitant]
     Active Substance: DIAZEPAM
  9. NITROFURANTOIN. [Concomitant]
     Active Substance: NITROFURANTOIN
  10. OMEPRAZOLE. [Concomitant]
     Active Substance: OMEPRAZOLE
  11. AMITRIPTYLINE [Suspect]
     Active Substance: AMITRIPTYLINE
     Dosage: 10 MG, 1X/DAY AT NIGHT
     Route: 048
     Dates: start: 20161121, end: 20161128
  12. DOCUSATE [Suspect]
     Active Substance: DOCUSATE
     Indication: CONSTIPATION
     Dosage: 200 MG, 2X/DAY
  13. BUPRENORPHINE. [Concomitant]
     Active Substance: BUPRENORPHINE
  14. CALCICHEW D3 [Concomitant]
     Active Substance: CALCIUM\CHOLECALCIFEROL
  15. NAPROXEN. [Concomitant]
     Active Substance: NAPROXEN
  16. CELECOXIB. [Concomitant]
     Active Substance: CELECOXIB

REACTIONS (4)
  - Vomiting [Recovering/Resolving]
  - Malaise [Recovering/Resolving]
  - Lethargy [Recovering/Resolving]
  - Lip swelling [Recovering/Resolving]

NARRATIVE: CASE EVENT DATE: 20161121
